FAERS Safety Report 11909518 (Version 5)
Quarter: 2016Q2

REPORT INFORMATION
  Report Type: Report from Study
  Country: US (occurrence: US)
  Receive Date: 20160112
  Receipt Date: 20160617
  Transmission Date: 20160815
  Serious: Yes (Hospitalization, Other)
  Sender: FDA-Public Use
  Company Number: US-UCBSA-2016000479

PATIENT
  Age: 27 Year
  Sex: Female

DRUGS (10)
  1. LACOSAMIDE. [Suspect]
     Active Substance: LACOSAMIDE
     Dosage: 275 MG, 2X/DAY (BID)
     Route: 048
     Dates: start: 2012, end: 20160106
  2. LACOSAMIDE. [Suspect]
     Active Substance: LACOSAMIDE
     Dosage: 200 MG, 2X/DAY (BID)
     Dates: start: 2016
  3. TRILEPTAL [Suspect]
     Active Substance: OXCARBAZEPINE
     Indication: EPILEPSY
     Dosage: 600 MG, DAILY
     Dates: start: 20160108, end: 201601
  4. ONFI [Suspect]
     Active Substance: CLOBAZAM
     Dosage: 20 MG, 2X/DAY (BID)
     Dates: start: 201601
  5. TRILEPTAL [Suspect]
     Active Substance: OXCARBAZEPINE
     Dosage: 150 MG, UNK
     Dates: start: 201601, end: 20160113
  6. LACOSAMIDE. [Suspect]
     Active Substance: LACOSAMIDE
     Indication: EPILEPSY
     Dosage: 50 MG 12/DAILY
     Dates: start: 20111027
  7. LACOSAMIDE. [Suspect]
     Active Substance: LACOSAMIDE
     Dosage: 200 MG, UNK
     Route: 042
     Dates: start: 20160113, end: 2016
  8. TRILEPTAL [Suspect]
     Active Substance: OXCARBAZEPINE
     Dosage: 300 MG
     Dates: start: 201601, end: 201601
  9. LEVETIRACETAM. [Concomitant]
     Active Substance: LEVETIRACETAM
     Indication: PRODUCT USED FOR UNKNOWN INDICATION
     Dosage: UNK
     Dates: start: 20110308
  10. ONFI [Suspect]
     Active Substance: CLOBAZAM
     Indication: EPILEPSY
     Dosage: 10 MG, 2X/DAY (BID)
     Dates: start: 20160108, end: 201601

REACTIONS (9)
  - Eye disorder [Recovered/Resolved]
  - Overdose [Unknown]
  - Generalised tonic-clonic seizure [Recovered/Resolved]
  - Alopecia [Recovering/Resolving]
  - Cardiac arrest [Recovered/Resolved]
  - Speech disorder [Recovered/Resolved]
  - Partial seizures [Recovered/Resolved]
  - Drug withdrawal syndrome [Recovered/Resolved]
  - Off label use [Unknown]

NARRATIVE: CASE EVENT DATE: 20111027
